FAERS Safety Report 9592263 (Version 1)
Quarter: 2013Q4

REPORT INFORMATION
  Report Type: Spontaneous
  Country: BR (occurrence: BR)
  Receive Date: 20131004
  Receipt Date: 20131004
  Transmission Date: 20140711
  Serious: Yes (Other)
  Sender: FDA-Public Use
  Company Number: BR-BRISTOL-MYERS SQUIBB COMPANY-19447515

PATIENT
  Age: 73 Year
  Sex: Female
  Weight: 120 kg

DRUGS (2)
  1. BYETTA PEN DISPOSABLE [Suspect]
     Indication: DIABETES MELLITUS
     Dosage: INITIAL DOSE 5MCG THEN INCREASED TO 10MCG
     Route: 058
     Dates: start: 20130816
  2. LYRICA [Concomitant]
     Indication: DIABETIC NEUROPATHY

REACTIONS (6)
  - Renal disorder [Unknown]
  - Swelling [Unknown]
  - Weight decreased [Unknown]
  - Blood glucose decreased [Unknown]
  - Urinary tract infection [Recovered/Resolved]
  - Abdominal pain upper [Recovering/Resolving]
